FAERS Safety Report 13678381 (Version 1)
Quarter: 2017Q2

REPORT INFORMATION
  Report Type: Spontaneous
  Country: US (occurrence: US)
  Receive Date: 20170621
  Receipt Date: 20170621
  Transmission Date: 20170830
  Serious: Yes (Hospitalization, Disabling, Other)
  Sender: FDA-Public Use
  Company Number: None

PATIENT
  Age: 32 Year
  Sex: Female
  Weight: 56.25 kg

DRUGS (1)
  1. CIPROFLOXACIN. [Suspect]
     Active Substance: CIPROFLOXACIN
     Indication: GASTROINTESTINAL INFECTION
     Route: 048

REACTIONS (18)
  - Depression [None]
  - Balance disorder [None]
  - Nightmare [None]
  - Tendon discomfort [None]
  - Heart rate increased [None]
  - Hormone level abnormal [None]
  - Asthenia [None]
  - Muscle atrophy [None]
  - Exercise tolerance decreased [None]
  - Photophobia [None]
  - Psychotic disorder [None]
  - Arrhythmia [None]
  - Headache [None]
  - Mental impairment [None]
  - Insomnia [None]
  - Tinnitus [None]
  - Cervical dysplasia [None]
  - Anxiety [None]
